FAERS Safety Report 10164419 (Version 2)
Quarter: 2014Q2

REPORT INFORMATION
  Report Type: Spontaneous
  Country: US (occurrence: US)
  Receive Date: 20140510
  Receipt Date: 20140510
  Transmission Date: 20141212
  Serious: No
  Sender: FDA-Public Use
  Company Number: US200706003969

PATIENT
  Age: 58 Year
  Sex: Female
  Weight: 99.77 kg

DRUGS (3)
  1. BYETTA PEN DISPOSABLE [Suspect]
     Indication: TYPE 2 DIABETES MELLITUS
     Dosage: LOT:73483,EXP:APR2015?NDC# 66780-219-04?PRESCRIPTION#674835
     Route: 058
     Dates: start: 200705
  2. BYDUREON [Suspect]
     Indication: TYPE 2 DIABETES MELLITUS
     Dosage: PRESCRIPTION#674835
     Route: 058
     Dates: start: 2013
  3. METFORMIN [Concomitant]
     Route: 048

REACTIONS (2)
  - Injection site bruising [Recovering/Resolving]
  - Injection site nodule [Not Recovered/Not Resolved]
